FAERS Safety Report 7910751-X (Version None)
Quarter: 2011Q4

REPORT INFORMATION
  Report Type: 
  Country: None (occurrence: None)
  Receive Date: 20111112
  Receipt Date: 20111107
  Transmission Date: 20120403
  Serious: Yes (Death, Other)
  Sender: FDA-Public Use
  Company Number: US-ASTRAZENECA-2011SE48437

PATIENT
  Sex: Male
  Weight: 95.1 kg

DRUGS (5)
  1. SEROQUEL XR [Suspect]
     Route: 048
     Dates: start: 20030811
  2. COGENTIN [Concomitant]
     Indication: EXTRAPYRAMIDAL DISORDER
     Dates: start: 20030811
  3. HALDOL [Concomitant]
     Indication: AFFECTIVE DISORDER
     Route: 030
     Dates: start: 20030811
  4. SEROQUEL XR [Suspect]
     Indication: SCHIZOAFFECTIVE DISORDER
     Route: 048
  5. DEPAKOTE [Concomitant]
     Indication: AFFECTIVE DISORDER
     Route: 048
     Dates: start: 20030811

REACTIONS (1)
  - TESTIS CANCER [None]
